FAERS Safety Report 5605946-4 (Version None)
Quarter: 2008Q1

REPORT INFORMATION
  Report Type: 
  Country: None (occurrence: None)
  Receive Date: 20080129
  Receipt Date: 20080117
  Transmission Date: 20080703
  Serious: Yes (Other)
  Sender: FDA-Public Use
  Company Number: US-ASTRAZENECA-2007UW18817

PATIENT
  Age: 608 Month
  Sex: Female
  Weight: 75 kg

DRUGS (5)
  1. SEROQUEL [Suspect]
     Indication: SLEEP DISORDER
     Dosage: 75 MG, 150 MG, 300 MG
     Route: 048
     Dates: start: 19980401, end: 19990201
  2. SEROQUEL [Suspect]
     Indication: DEPRESSION
     Dosage: 75 MG, 150 MG, 300 MG
     Route: 048
     Dates: start: 19980401, end: 19990201
  3. SEROQUEL [Suspect]
     Dosage: 75 MG, 150 MG, 300 MG
     Route: 048
     Dates: start: 20020101, end: 20060201
  4. SEROQUEL [Suspect]
     Dosage: 75 MG, 150 MG, 300 MG
     Route: 048
     Dates: start: 20020101, end: 20060201
  5. METHADONE HCL [Concomitant]

REACTIONS (3)
  - BLOOD CHOLESTEROL INCREASED [None]
  - DIABETES MELLITUS [None]
  - NEUROPATHY PERIPHERAL [None]
